FAERS Safety Report 6657833-0 (Version None)
Quarter: 2010Q1

REPORT INFORMATION
  Report Type: 
  Country: None (occurrence: None)
  Receive Date: 20100330
  Receipt Date: 20100317
  Transmission Date: 20100710
  Serious: Yes (Other)
  Sender: FDA-Public Use
  Company Number: US-ROCHE-677891

PATIENT
  Sex: Female
  Weight: 70.3 kg

DRUGS (5)
  1. BONIVA [Suspect]
     Indication: DRUG USE FOR UNKNOWN INDICATION
     Dosage: DOSE: 3MG/3ML
     Route: 042
     Dates: start: 20090101
  2. BACTRIM DS [Suspect]
     Indication: DRUG USE FOR UNKNOWN INDICATION
     Route: 048
  3. LEVSIN [Concomitant]
     Dosage: PRN
     Route: 048
  4. LIPITOR [Concomitant]
     Dosage: QHS
     Route: 048
  5. NEXIUM [Concomitant]
     Indication: GASTRITIS
     Route: 048

REACTIONS (4)
  - DRUG HYPERSENSITIVITY [None]
  - INFLAMMATION [None]
  - INJECTION SITE EXTRAVASATION [None]
  - SKIN NECROSIS [None]
